FAERS Safety Report 12191661 (Version 1)
Quarter: 2016Q1

REPORT INFORMATION
  Report Type: Spontaneous
  Country: US (occurrence: US)
  Receive Date: 20160318
  Receipt Date: 20160318
  Transmission Date: 20160526
  Serious: Yes (Other)
  Sender: FDA-Public Use
  Company Number: US-MEDTRONIC-1049305

PATIENT
  Age: 20 Year
  Sex: Male

DRUGS (1)
  1. BACLOFEN UNKNOWN [Suspect]
     Active Substance: BACLOFEN
     Indication: QUADRIPARESIS
     Route: 037

REACTIONS (4)
  - Purulent discharge [None]
  - Implant site infection [None]
  - Implant site necrosis [None]
  - Skin erosion [None]
